FAERS Safety Report 6712718-6 (Version None)
Quarter: 2010Q2

REPORT INFORMATION
  Report Type: 
  Country: None (occurrence: None)
  Receive Date: 20100506
  Receipt Date: 20100427
  Transmission Date: 20101027
  Serious: No
  Sender: FDA-Public Use
  Company Number: US-JNJFOC-20100407989

PATIENT
  Sex: Female
  Weight: 84.82 kg

DRUGS (2)
  1. FENTANYL CITRATE [Suspect]
     Indication: BACK PAIN
     Route: 062
     Dates: start: 20100401
  2. FLEXERIL [Concomitant]
     Indication: MUSCLE SPASMS
     Route: 048
     Dates: start: 20090101

REACTIONS (1)
  - WRONG TECHNIQUE IN DRUG USAGE PROCESS [None]
